FAERS Safety Report 10027285 (Version 1)
Quarter: 2014Q1

REPORT INFORMATION
  Report Type: Report from Study
  Country: ES (occurrence: ES)
  Receive Date: 20140321
  Receipt Date: 20140321
  Transmission Date: 20141002
  Serious: Yes (Death)
  Sender: FDA-Public Use
  Company Number: ES-ASTELLAS-2014EU002400

PATIENT
  Age: 38 Year
  Sex: Male

DRUGS (3)
  1. TACROLIMUS [Suspect]
     Indication: PROPHYLAXIS AGAINST GRAFT VERSUS HOST DISEASE
     Dosage: 0.01 MG/KG, UNKNOWN/D
     Route: 042
  2. TACROLIMUS [Suspect]
     Dosage: 0.03 MG/KG, UNKNOWN/D
     Route: 042
  3. MTX /00113801/ [Suspect]
     Indication: PROPHYLAXIS AGAINST GRAFT VERSUS HOST DISEASE
     Dosage: UNK
     Route: 065

REACTIONS (4)
  - Off label use [Unknown]
  - Thrombotic microangiopathy [Fatal]
  - Zygomycosis [Fatal]
  - Gastrointestinal haemorrhage [Fatal]
